FAERS Safety Report 10218982 (Version 3)
Quarter: 2014Q3

REPORT INFORMATION
  Report Type: Spontaneous
  Country: FR (occurrence: FR)
  Receive Date: 20140605
  Receipt Date: 20140814
  Transmission Date: 20150326
  Serious: Yes (Death)
  Sender: FDA-Public Use
  Company Number: FR-PFIZER INC-2014084322

PATIENT
  Age: 86 Year
  Sex: Female

DRUGS (1)
  1. CYTOTEC [Suspect]
     Active Substance: MISOPROSTOL
     Indication: FIBROMA
     Dosage: 200 UG, 2X/DAY
     Route: 067

REACTIONS (2)
  - Off label use [Unknown]
  - Death [Fatal]
